FAERS Safety Report 17203999 (Version 1)
Quarter: 2019Q4

REPORT INFORMATION
  Report Type: Spontaneous
  Country: NL (occurrence: NL)
  Receive Date: 20191226
  Receipt Date: 20191226
  Transmission Date: 20200122
  Serious: Yes (Other)
  Sender: FDA-Public Use
  Company Number: NL-MYLANLABS-2019M1126972

PATIENT
  Age: 34 Year
  Sex: Male

DRUGS (8)
  1. ARIPIPRAZOLE. [Suspect]
     Active Substance: ARIPIPRAZOLE
     Indication: PSYCHOTIC SYMPTOM
     Dosage: 10 MILLIGRAM, QD
     Route: 065
     Dates: start: 20190412, end: 20190615
  2. ARIPIPRAZOLE. [Suspect]
     Active Substance: ARIPIPRAZOLE
     Indication: SCHIZOPHRENIA
     Dosage: UNK
     Route: 065
  3. CISORDINOL DEPOT [Suspect]
     Active Substance: ZUCLOPENTHIXOL
     Indication: SCHIZOPHRENIA
     Dosage: UNK
     Route: 030
  4. ARIPIPRAZOLE. [Suspect]
     Active Substance: ARIPIPRAZOLE
     Dosage: 400 MILLIGRAM, MONTHLY
     Route: 065
     Dates: start: 20190412
  5. CISORDINOL DEPOT [Suspect]
     Active Substance: ZUCLOPENTHIXOL
     Indication: PSYCHOTIC SYMPTOM
     Dosage: 200 MILLIGRAM, Q3W
     Route: 030
     Dates: end: 20190412
  6. LORAZEPAM. [Concomitant]
     Active Substance: LORAZEPAM
     Indication: PRODUCT USED FOR UNKNOWN INDICATION
     Dosage: UNK
     Route: 065
  7. BIPERIDEN [Concomitant]
     Active Substance: BIPERIDEN
     Indication: PRODUCT USED FOR UNKNOWN INDICATION
     Dosage: UNK
     Route: 065
  8. MACROGOL W/POTASSIUM CHLORIDE/SODIU/06401201/ [Concomitant]
     Indication: PRODUCT USED FOR UNKNOWN INDICATION
     Dosage: 13.7 GRAM

REACTIONS (7)
  - Abdominal discomfort [Not Recovered/Not Resolved]
  - Dizziness [Not Recovered/Not Resolved]
  - Intestinal fistula [Unknown]
  - Acute stress disorder [Not Recovered/Not Resolved]
  - Dyskinesia [Not Recovered/Not Resolved]
  - Tardive dyskinesia [Not Recovered/Not Resolved]
  - Bradyphrenia [Not Recovered/Not Resolved]
